FAERS Safety Report 8172438-0 (Version None)
Quarter: 2012Q1

REPORT INFORMATION
  Report Type: 
  Country: None (occurrence: None)
  Receive Date: 20120229
  Receipt Date: 20120216
  Transmission Date: 20120608
  Serious: Yes (Hospitalization)
  Sender: FDA-Public Use
  Company Number: US-ELI_LILLY_AND_COMPANY-US201108004441

PATIENT
  Sex: Female

DRUGS (4)
  1. FORTEO [Suspect]
     Dosage: 20 UG, QD
  2. FORTEO [Suspect]
     Dosage: 20 UG, QD
  3. FORTEO [Suspect]
     Dosage: 20 UG, QD
     Dates: end: 20120101
  4. FORTEO [Suspect]
     Indication: OSTEOPOROSIS
     Dosage: 20 UG, QD
     Route: 065
     Dates: start: 20110301

REACTIONS (9)
  - NECK PAIN [None]
  - BONE PAIN [None]
  - GINGIVAL PAIN [None]
  - HEARING IMPAIRED [None]
  - MUSCULOSKELETAL DISORDER [None]
  - HEADACHE [None]
  - PAIN IN EXTREMITY [None]
  - ARTHRALGIA [None]
  - SURGERY [None]
